FAERS Safety Report 9377684 (Version 1)
Quarter: 2013Q3

REPORT INFORMATION
  Report Type: Spontaneous
  Country: CA (occurrence: CA)
  Receive Date: 20130701
  Receipt Date: 20130701
  Transmission Date: 20140515
  Serious: Yes (Hospitalization)
  Sender: FDA-Public Use
  Company Number: CA-BRISTOL-MYERS SQUIBB COMPANY-19056738

PATIENT
  Age: 8 Decade
  Sex: Male

DRUGS (2)
  1. ABILIFY [Suspect]
     Indication: DEPRESSION
     Route: 048
  2. SERTRALINE [Suspect]

REACTIONS (1)
  - Pulmonary oedema [Recovering/Resolving]
